FAERS Safety Report 16216752 (Version 1)
Quarter: 2019Q2

REPORT INFORMATION
  Report Type: Spontaneous
  Country: AU (occurrence: AU)
  Receive Date: 20190419
  Receipt Date: 20190419
  Transmission Date: 20190711
  Serious: Yes (Other)
  Sender: FDA-Public Use
  Company Number: AU-IPSEN BIOPHARMACEUTICALS, INC.-2019-06214

PATIENT
  Age: 53 Year
  Sex: Female

DRUGS (3)
  1. RESTYLANE [Suspect]
     Active Substance: HYALURONIC ACID
     Dosage: 1 ML
     Dates: start: 20180611
  2. RESTYLANE [Suspect]
     Active Substance: HYALURONIC ACID
     Indication: PRODUCT USED FOR UNKNOWN INDICATION
     Dosage: RESTYLANE KYSSE- 3ML
     Dates: start: 2017
  3. DYSPORT [Suspect]
     Active Substance: ABOBOTULINUMTOXINA
     Indication: SKIN COSMETIC PROCEDURE
     Dosage: NOT REPORTED
     Route: 065
     Dates: start: 20181008, end: 20181008

REACTIONS (3)
  - Swelling [Unknown]
  - Autoimmune disorder [Unknown]
  - Induration [Unknown]
